FAERS Safety Report 5415121-4 (Version None)
Quarter: 2007Q3

REPORT INFORMATION
  Report Type: 
  Country: None (occurrence: None)
  Receive Date: 20070815
  Receipt Date: 20070718
  Transmission Date: 20080115
  Serious: Yes (Other)
  Sender: FDA-Public Use
  Company Number: A0656654A

PATIENT
  Age: 49 Year
  Sex: Female
  Weight: 81.4 kg

DRUGS (4)
  1. COREG CR [Suspect]
     Dosage: 80MG PER DAY
     Route: 048
  2. COREG [Concomitant]
     Dosage: 9.375MG TWICE PER DAY
     Route: 048
  3. DIOVAN HCT [Concomitant]
     Indication: HYPERTENSION
     Dates: start: 20070510
  4. ASPIRIN [Concomitant]
     Dosage: 81MG PER DAY
     Dates: start: 20060510

REACTIONS (1)
  - BLOOD PRESSURE INCREASED [None]
